FAERS Safety Report 15538961 (Version 1)
Quarter: 2018Q4

REPORT INFORMATION
  Report Type: Spontaneous
  Country: US (occurrence: US)
  Receive Date: 20181022
  Receipt Date: 20181022
  Transmission Date: 20190205
  Serious: No
  Sender: FDA-Public Use
  Company Number: US-PFIZER INC-2018406909

PATIENT
  Age: 77 Year

DRUGS (1)
  1. METOCLOPRAMIDE HCL [Suspect]
     Active Substance: METOCLOPRAMIDE HYDROCHLORIDE
     Dosage: 150 MG, 2X/DAY

REACTIONS (2)
  - Tardive dyskinesia [Unknown]
  - Drug hypersensitivity [Unknown]
